FAERS Safety Report 20777752 (Version 4)
Quarter: 2023Q1

REPORT INFORMATION
  Report Type: Report from Study
  Country: CA (occurrence: CA)
  Receive Date: 20220503
  Receipt Date: 20230321
  Transmission Date: 20230418
  Serious: Yes (Other)
  Sender: FDA-Public Use
  Company Number: CA-JNJFOC-20220457865

PATIENT
  Age: 29 Year
  Sex: Female
  Weight: 128 kg

DRUGS (1)
  1. REMICADE [Suspect]
     Active Substance: INFLIXIMAB
     Indication: Colitis ulcerative
     Dosage: EXPIRY DATE : 31-DEC-2024?STAT DOSE OF 600 MG REQUESTED
     Route: 042

REACTIONS (4)
  - Colitis ulcerative [Unknown]
  - COVID-19 [Recovering/Resolving]
  - Influenza like illness [Not Recovered/Not Resolved]
  - Exposure during pregnancy [Not Recovered/Not Resolved]

NARRATIVE: CASE EVENT DATE: 20220321
